FAERS Safety Report 25802816 (Version 1)
Quarter: 2025Q3

REPORT INFORMATION
  Report Type: Spontaneous
  Country: US (occurrence: US)
  Receive Date: 20250915
  Receipt Date: 20250915
  Transmission Date: 20251020
  Serious: No
  Sender: BAYER HEALTHCARE LLC
  Company Number: US-BAYER-2025A121894

PATIENT
  Sex: Male

DRUGS (1)
  1. MIRALAX [Suspect]
     Active Substance: POLYETHYLENE GLYCOL 3350
     Indication: Diagnostic procedure
     Route: 048

REACTIONS (3)
  - Product use in unapproved indication [Unknown]
  - Increased dose administered [Unknown]
  - Product packaging quantity issue [Unknown]
